FAERS Safety Report 4312281-3 (Version None)
Quarter: 2004Q1

REPORT INFORMATION
  Report Type: 
  Country: None (occurrence: None)
  Receive Date: 20040303
  Receipt Date: 20040213
  Transmission Date: 20041129
  Serious: Yes (Hospitalization, Other)
  Sender: FDA-Public Use
  Company Number: 2003124350

PATIENT
  Age: 62 Year
  Sex: Male

DRUGS (5)
  1. DILANTIN KAPSEAL [Suspect]
     Indication: CONVULSION
     Dosage: 500 MG (DAILY), ORAL
     Route: 048
     Dates: end: 20031229
  2. DILANTIN KAPSEAL [Suspect]
     Indication: EPILEPSY
     Dosage: 500 MG (DAILY), ORAL
     Route: 048
     Dates: end: 20031229
  3. DILANTIN KAPSEAL [Suspect]
  4. DILANTIN KAPSEAL [Suspect]
  5. FOLIC ACID [Concomitant]

REACTIONS (3)
  - ANTICONVULSANT DRUG LEVEL DECREASED [None]
  - CONVULSION [None]
  - PHARMACEUTICAL PRODUCT COMPLAINT [None]
